FAERS Safety Report 17068805 (Version 2)
Quarter: 2020Q1

REPORT INFORMATION
  Report Type: Spontaneous
  Country: US (occurrence: US)
  Receive Date: 20191124
  Receipt Date: 20200118
  Transmission Date: 20200409
  Serious: No
  Sender: FDA-Public Use
  Company Number: US-BIOGEN-2019BI00809918

PATIENT
  Sex: Female

DRUGS (2)
  1. TECFIDERA [Suspect]
     Active Substance: DIMETHYL FUMARATE
     Dosage: X 23 DAYS AFTER 120 MG DOSE
     Route: 048
     Dates: end: 201911
  2. TECFIDERA [Suspect]
     Active Substance: DIMETHYL FUMARATE
     Indication: MULTIPLE SCLEROSIS
     Dosage: X 7 DAYS
     Route: 048
     Dates: end: 201911

REACTIONS (7)
  - Flushing [Unknown]
  - Feeding disorder [Unknown]
  - Nausea [Recovered/Resolved]
  - Weight decreased [Unknown]
  - Vomiting [Unknown]
  - Urticaria [Unknown]
  - Hot flush [Recovered/Resolved]
